FAERS Safety Report 20273485 (Version 2)
Quarter: 2022Q1

REPORT INFORMATION
  Report Type: Spontaneous
  Country: FR (occurrence: FR)
  Receive Date: 20220102
  Receipt Date: 20220121
  Transmission Date: 20220423
  Serious: Yes (Other)
  Sender: FDA-Public Use
  Company Number: FR-LUPIN PHARMACEUTICALS INC.-2021-25525

PATIENT

DRUGS (15)
  1. VANCOMYCIN [Suspect]
     Active Substance: VANCOMYCIN
     Indication: Antibiotic therapy
     Dosage: 500 MILLIGRAM
     Route: 064
  2. CEFAZOLIN SODIUM [Suspect]
     Active Substance: CEFAZOLIN SODIUM
     Indication: Product used for unknown indication
     Dosage: 2 GRAM, UNK
     Route: 064
  3. HYDROXYZINE [Suspect]
     Active Substance: HYDROXYZINE HYDROCHLORIDE
     Indication: Product used for unknown indication
     Dosage: 1 MILLIGRAM/KILOGRAM
     Route: 064
  4. INDOMETHACIN [Suspect]
     Active Substance: INDOMETHACIN
     Indication: Tocolysis
     Dosage: 50 MILLIGRAM PREOPERATIVELY
     Route: 064
  5. INDOMETHACIN [Suspect]
     Active Substance: INDOMETHACIN
     Dosage: 50 MILLIGRAM, QID FOR THE FIRST 24H FOLLOWING SURGERY
     Route: 064
  6. INDOMETHACIN [Suspect]
     Active Substance: INDOMETHACIN
     Dosage: 25 MILLIGRAM, QID ON DAY 2
     Route: 064
  7. ATOSIBAN [Suspect]
     Active Substance: ATOSIBAN
     Indication: Tocolysis
     Dosage: 18 MILLIGRAM PER HOUR AT THE BEGINNING OF THE SURGERY AND FOR THE FIRST 3 HOURS
     Route: 064
  8. ATOSIBAN [Suspect]
     Active Substance: ATOSIBAN
     Dosage: 6 MILLIGRAM PER HOUR DURING 43H
     Route: 064
  9. PROPOFOL [Suspect]
     Active Substance: PROPOFOL
     Indication: Induction of anaesthesia
     Dosage: UNK
     Route: 064
  10. SUCCINYLCHOLINE [Suspect]
     Active Substance: SUCCINYLCHOLINE
     Indication: Induction of anaesthesia
     Dosage: UNK
     Route: 064
  11. SEVOFLURANE [Suspect]
     Active Substance: SEVOFLURANE
     Indication: Maintenance of anaesthesia
     Dosage: UNK 3 PERCENT
     Route: 064
  12. ATRACURIUM BESYLATE [Suspect]
     Active Substance: ATRACURIUM BESYLATE
     Indication: Maintenance of anaesthesia
     Dosage: 0.5 MILLIGRAM/KILOGRAM
     Route: 064
  13. SUFENTANIL [Suspect]
     Active Substance: SUFENTANIL
     Indication: Drug therapy
     Dosage: 0.2 MICROGRAM/KILOGRAM
     Route: 064
  14. SALINE [Suspect]
     Active Substance: SODIUM CHLORIDE
     Indication: Drug therapy
     Dosage: UNK WARMED STERILE
     Route: 064
  15. NIFEDIPINE [Suspect]
     Active Substance: NIFEDIPINE
     Indication: Tocolysis
     Dosage: UNK
     Route: 064

REACTIONS (2)
  - Premature baby [Unknown]
  - Foetal exposure during pregnancy [Unknown]
